FAERS Safety Report 6537001-3 (Version None)
Quarter: 2010Q1

REPORT INFORMATION
  Report Type: 
  Country: None (occurrence: None)
  Receive Date: 20100107
  Receipt Date: 20091224
  Transmission Date: 20100710
  Serious: Yes (Hospitalization)
  Sender: FDA-Public Use
  Company Number: POMP-1000812

PATIENT
  Age: 18 Month
  Sex: Female
  Weight: 7.9 kg

DRUGS (1)
  1. MYOZYME [Suspect]
     Indication: GLYCOGEN STORAGE DISEASE TYPE II
     Dosage: 20 MG/KG, Q2W, INTRAVENOUS
     Route: 042
     Dates: start: 20080715

REACTIONS (3)
  - DRUG INEFFECTIVE [None]
  - MALAISE [None]
  - RESPIRATORY FAILURE [None]
